FAERS Safety Report 4777732-9 (Version None)
Quarter: 2005Q3

REPORT INFORMATION
  Report Type: 
  Country: None (occurrence: None)
  Receive Date: 20050921
  Receipt Date: 20050907
  Transmission Date: 20060218
  Serious: Yes (Hospitalization)
  Sender: FDA-Public Use
  Company Number: USA050495812

PATIENT
  Age: 63 Year
  Sex: Female

DRUGS (1)
  1. FORTEO [Suspect]
     Indication: OSTEOPOROSIS
     Dosage: 20 UG
     Dates: start: 20040101

REACTIONS (5)
  - CONDITION AGGRAVATED [None]
  - FALL [None]
  - PARKINSON'S DISEASE [None]
  - SCLERODERMA [None]
  - WRIST FRACTURE [None]
